FAERS Safety Report 7499839-8 (Version None)
Quarter: 2011Q2

REPORT INFORMATION
  Report Type: 
  Country: None (occurrence: None)
  Receive Date: 20110517
  Receipt Date: 20110506
  Transmission Date: 20111010
  Serious: Yes (Other)
  Sender: FDA-Public Use
  Company Number: 2011AP000928

PATIENT
  Age: 32 Year
  Sex: Female

DRUGS (4)
  1. DIAZEPAM [Concomitant]
  2. PAROXETINE HCL [Suspect]
     Indication: DEPRESSION
     Dosage: 30 MG; PO
     Route: 048
     Dates: start: 20110301
  3. PROPRANOLOL [Concomitant]
  4. ZOPICLONE (ZOPICLONE) [Concomitant]

REACTIONS (6)
  - BURNING SENSATION [None]
  - MALAISE [None]
  - WITHDRAWAL SYNDROME [None]
  - ANXIETY [None]
  - PANIC ATTACK [None]
  - PARAESTHESIA [None]
